FAERS Safety Report 9883952 (Version 1)
Quarter: 2014Q1

REPORT INFORMATION
  Report Type: Spontaneous
  Country: US (occurrence: US)
  Receive Date: 20140210
  Receipt Date: 20140210
  Transmission Date: 20141002
  Serious: No
  Sender: FDA-Public Use
  Company Number: US-ALLERGAN-1317419US

PATIENT
  Sex: Female

DRUGS (18)
  1. BOTOX [Suspect]
     Indication: SKIN WRINKLING
     Dosage: UNK UNK, SINGLE
     Route: 030
     Dates: start: 20131017, end: 20131017
  2. JUVEDERM [Concomitant]
     Indication: SKIN WRINKLING
     Dosage: UNK UNK, SINGLE
     Route: 023
  3. TRAZODONE [Concomitant]
  4. CARISOPRODOL [Concomitant]
  5. PREVACID [Concomitant]
  6. BENAZEPRIL [Concomitant]
  7. DIVALPROEX [Concomitant]
  8. SEROQUEL [Concomitant]
  9. DOXEPIN [Concomitant]
  10. LEVOTHYROXINE [Concomitant]
  11. PREMPRO [Concomitant]
  12. BANOPHEN [Concomitant]
  13. CETIRIZINE [Concomitant]
  14. MULTIVITAMINS [Concomitant]
  15. VITAMIN D [Concomitant]
  16. VITAMIN B12 [Concomitant]
  17. GUAIFENESIN [Concomitant]
  18. MELATONIN [Concomitant]

REACTIONS (1)
  - Dyspnoea [Unknown]
